FAERS Safety Report 25547435 (Version 1)
Quarter: 2025Q3

REPORT INFORMATION
  Report Type: Spontaneous
  Country: EU (occurrence: EU)
  Receive Date: 20250714
  Receipt Date: 20250714
  Transmission Date: 20251021
  Serious: Yes (Hospitalization)
  Sender: TEVA
  Company Number: None

PATIENT
  Age: 71 Year
  Sex: Female
  Weight: 80 kg

DRUGS (1)
  1. HYDROCHLOROTHIAZIDE [Suspect]
     Active Substance: HYDROCHLOROTHIAZIDE
     Indication: Cardiac failure
     Dosage: 1X PER DAY 1 PIECE, BRAND NAME NOT SPECIFIED
     Route: 048
     Dates: start: 20160101, end: 20250620

REACTIONS (2)
  - Hyponatraemia [Recovered/Resolved]
  - Fall [Recovered/Resolved]
